FAERS Safety Report 14500246 (Version 1)
Quarter: 2018Q1

REPORT INFORMATION
  Report Type: Spontaneous
  Country: IE (occurrence: IE)
  Receive Date: 20180207
  Receipt Date: 20180207
  Transmission Date: 20180509
  Serious: Yes (Other)
  Sender: FDA-Public Use
  Company Number: IE-009507513-1802IRL002525

PATIENT
  Age: 70 Year
  Sex: Female

DRUGS (2)
  1. EZETROL [Suspect]
     Active Substance: EZETIMIBE
     Indication: BLOOD CHOLESTEROL INCREASED
  2. EZETROL [Suspect]
     Active Substance: EZETIMIBE
     Indication: FAMILIAL RISK FACTOR
     Dosage: AT NIGHT
     Route: 048

REACTIONS (4)
  - Musculoskeletal stiffness [Not Recovered/Not Resolved]
  - Pain [Not Recovered/Not Resolved]
  - Myalgia [Not Recovered/Not Resolved]
  - Insomnia [Not Recovered/Not Resolved]
